FAERS Safety Report 15807235 (Version 1)
Quarter: 2019Q1

REPORT INFORMATION
  Report Type: Spontaneous
  Country: US (occurrence: US)
  Receive Date: 20190103
  Receipt Date: 20190103
  Transmission Date: 20190417
  Serious: No
  Sender: FDA-Public Use
  Company Number: None

PATIENT

DRUGS (2)
  1. LANTUS [Suspect]
     Active Substance: INSULIN GLARGINE
  2. REGULAR INSULIN [Suspect]
     Active Substance: INSULIN NOS

REACTIONS (2)
  - Product preparation issue [None]
  - Wrong technique in product usage process [None]
